FAERS Safety Report 25614997 (Version 3)
Quarter: 2025Q3

REPORT INFORMATION
  Report Type: Spontaneous
  Country: US (occurrence: US)
  Receive Date: 20250729
  Receipt Date: 20250918
  Transmission Date: 20251021
  Serious: No
  Sender: CIPLA
  Company Number: US-CIPLA LTD.-2025US09216

PATIENT

DRUGS (2)
  1. BUDESONIDE [Suspect]
     Active Substance: BUDESONIDE
     Indication: Pulmonary sarcoidosis
     Dates: start: 202402
  2. BUDESONIDE [Suspect]
     Active Substance: BUDESONIDE
     Dosage: 2 DOSAGE FORM, BID
     Dates: start: 20250605, end: 2025

REACTIONS (8)
  - Dizziness [Unknown]
  - Nausea [Unknown]
  - Product with quality issue administered [Unknown]
  - Product colour issue [Unknown]
  - Liquid product physical issue [Unknown]
  - Product quality issue [Unknown]
  - Off label use [Unknown]
  - Cough [Unknown]

NARRATIVE: CASE EVENT DATE: 20240201
